FAERS Safety Report 8540416-5 (Version None)
Quarter: 2012Q3

REPORT INFORMATION
  Report Type: 
  Country: None (occurrence: None)
  Receive Date: 20120726
  Receipt Date: 20120224
  Transmission Date: 20120928
  Serious: No
  Sender: FDA-Public Use
  Company Number: US-ASTRAZENECA-2011SE32415

PATIENT
  Age: 84 Year
  Sex: Female

DRUGS (1)
  1. SEROQUEL [Suspect]
     Indication: DEMENTIA
     Dosage: ONE TABLET EVERY MORNING, ONE AND A HALF TABLET IN THE AFTERNOON AND TWO TABLETS AT BEDTIME
     Route: 048
     Dates: start: 20100801

REACTIONS (4)
  - IRRITABILITY [None]
  - OFF LABEL USE [None]
  - PSYCHOMOTOR HYPERACTIVITY [None]
  - DRUG DOSE OMISSION [None]
